FAERS Safety Report 18974238 (Version 1)
Quarter: 2021Q1

REPORT INFORMATION
  Report Type: Spontaneous
  Country: US (occurrence: US)
  Receive Date: 20210305
  Receipt Date: 20210305
  Transmission Date: 20210420
  Serious: Yes (Life-Threatening, Other)
  Sender: FDA-Public Use
  Company Number: US-ORGANON-1906USA009826

PATIENT
  Sex: Female

DRUGS (1)
  1. NEXPLANON [Suspect]
     Active Substance: ETONOGESTREL
     Indication: CONTRACEPTION
     Dosage: 1 IMPLANT: ONCE FOR UP TO THREE YEARS, HCP INSERTION
     Route: 059
     Dates: end: 2015

REACTIONS (8)
  - Device dislocation [Recovered/Resolved]
  - General anaesthesia [Unknown]
  - Syncope [Unknown]
  - Vaginal haemorrhage [Unknown]
  - Anxiety [Unknown]
  - Migraine [Unknown]
  - Depression [Unknown]
  - Device issue [Recovered/Resolved]
